FAERS Safety Report 23164167 (Version 2)
Quarter: 2024Q1

REPORT INFORMATION
  Report Type: Report from Study
  Country: DE (occurrence: DE)
  Receive Date: 20231109
  Receipt Date: 20240124
  Transmission Date: 20240410
  Serious: Yes (Hospitalization, Other)
  Sender: FDA-Public Use
  Company Number: None

PATIENT
  Sex: Female

DRUGS (2)
  1. METHOTREXATE [Suspect]
     Active Substance: METHOTREXATE
     Indication: Product used for unknown indication
     Dosage: 50 MG
  2. ETANERCEPT [Suspect]
     Active Substance: ETANERCEPT
     Indication: Product used for unknown indication
     Dosage: 50 MG, EVERY 7 DAYS

REACTIONS (7)
  - Anal fissure haemorrhage [Not Recovered/Not Resolved]
  - Circulatory collapse [Recovered/Resolved]
  - COVID-19 [Unknown]
  - Pulmonary valve incompetence [Unknown]
  - Spinal pain [Not Recovered/Not Resolved]
  - Dizziness [Recovered/Resolved]
  - Spinal osteoarthritis [Not Recovered/Not Resolved]

NARRATIVE: CASE EVENT DATE: 20220310
